FAERS Safety Report 20615833 (Version 1)
Quarter: 2022Q1

REPORT INFORMATION
  Report Type: Report from Study
  Country: CA (occurrence: CA)
  Receive Date: 20220321
  Receipt Date: 20220321
  Transmission Date: 20220423
  Serious: Yes (Hospitalization)
  Sender: FDA-Public Use
  Company Number: CA-JNJFOC-20220332027

PATIENT
  Age: 19 Year
  Sex: Female
  Weight: 55 kg

DRUGS (1)
  1. REMICADE [Suspect]
     Active Substance: INFLIXIMAB
     Indication: Crohn^s disease
     Route: 042

REACTIONS (3)
  - COVID-19 [Recovered/Resolved]
  - Postoperative ileus [Recovered/Resolved]
  - Intestinal resection [Recovered/Resolved]

NARRATIVE: CASE EVENT DATE: 20220101
